FAERS Safety Report 7632452 (Version 4)
Quarter: 2012Q4

REPORT INFORMATION
  Report Type: 
  Country: US (occurrence: US)
  Receive Date: 20101018
  Receipt Date: 20120920
  Transmission Date: 20130627
  Serious: Yes (Hospitalization)
  Sender: FDA-Public Use
  Company Number: US-BAYER-201036922NA

PATIENT
  Age: 25 Year
  Sex: Female

DRUGS (9)
  1. YASMIN [Suspect]
     Dosage: UNK
     Route: 048
     Dates: start: 20080930, end: 20100321
  2. DEPO PROVERA [Concomitant]
  3. HYDROCHLOROTHIAZIDE [Concomitant]
     Indication: HYPERTENSION
  4. SUMATRIPTAN [Concomitant]
     Dosage: 50 mg, UNK
  5. CYCLOBENZAPRINE [Concomitant]
     Dosage: 10 mg, UNK
  6. IBUPROFEN [Concomitant]
     Dosage: 800 mg, UNK
  7. ACETAMINOPHEN - CODEINE [Concomitant]
     Dosage: 300-30 mg - take 1 tablet every 4 to 6 hours.
     Route: 048
  8. LORAZEPAM [Concomitant]
     Dosage: 0.5 mg - take 1 tablet every 6 to 8 hours.
     Route: 048
  9. EPIDRIN [Concomitant]
     Dosage: 325-65-100 mg

REACTIONS (2)
  - Pulmonary embolism [Recovered/Resolved]
  - Pain [Recovered/Resolved]
